FAERS Safety Report 9206446 (Version 2)
Quarter: 2013Q2

REPORT INFORMATION
  Report Type: Spontaneous
  Country: JP (occurrence: None)
  Receive Date: 20130401
  Receipt Date: 20130430
  Transmission Date: 20140414
  Serious: No
  Sender: FDA-Public Use
  Company Number: SPI201300196

PATIENT
  Age: 30 Year
  Sex: Female

DRUGS (3)
  1. AMITIZA [Suspect]
     Indication: CONSTIPATION
     Route: 048
     Dates: start: 20130304, end: 201303
  2. NEXIUM (ESOMEPRAZOLE MAGNESIUM) [Concomitant]
  3. MOSAPRIDE CITRATE (MOSAPRIDE CITRATE) [Concomitant]

REACTIONS (2)
  - Dyspnoea [None]
  - Abdominal distension [None]
